FAERS Safety Report 5853391-9 (Version None)
Quarter: 2008Q3

REPORT INFORMATION
  Report Type: 
  Country: None (occurrence: None)
  Receive Date: 20080821
  Receipt Date: 20080811
  Transmission Date: 20090109
  Serious: Yes (Other)
  Sender: FDA-Public Use
  Company Number: BR-PFIZER INC-2008067350

PATIENT
  Sex: Female
  Weight: 75 kg

DRUGS (3)
  1. GEODON [Suspect]
     Indication: BIPOLAR DISORDER
     Route: 048
  2. CARBOLITIUM [Concomitant]
     Route: 048
  3. LEVOTHYROXINE SODIUM [Concomitant]
     Route: 048

REACTIONS (3)
  - ASTHENIA [None]
  - BRADYPHRENIA [None]
  - SOMNOLENCE [None]
